FAERS Safety Report 7033090-0 (Version None)
Quarter: 2010Q4

REPORT INFORMATION
  Report Type: 
  Country: None (occurrence: None)
  Receive Date: 20101007
  Receipt Date: 20101004
  Transmission Date: 20110411
  Serious: Yes (Hospitalization)
  Sender: FDA-Public Use
  Company Number: UA-WYE-H17939010

PATIENT
  Sex: Male
  Weight: 111.6 kg

DRUGS (2)
  1. TEMSIROLIMUS [Suspect]
     Indication: RENAL CELL CARCINOMA
     Route: 042
     Dates: start: 20100528
  2. BEVACIZUMAB [Suspect]
     Route: 042
     Dates: start: 20100528

REACTIONS (1)
  - PERIOSTITIS [None]
